FAERS Safety Report 6746134-8 (Version None)
Quarter: 2010Q2

REPORT INFORMATION
  Report Type: 
  Country: None (occurrence: None)
  Receive Date: 20100528
  Receipt Date: 20100112
  Transmission Date: 20101027
  Serious: No
  Sender: FDA-Public Use
  Company Number: US-ASTRAZENECA-2010SE01378

PATIENT
  Age: 79 Year
  Sex: Female

DRUGS (6)
  1. PRILOSEC [Suspect]
     Route: 065
     Dates: start: 19870101
  2. LISINOPRIL [Concomitant]
  3. ATENOLOL [Concomitant]
  4. WARFARIN SODIUM [Concomitant]
  5. XANAX [Concomitant]
  6. SYNTHROID [Concomitant]

REACTIONS (3)
  - BREAST DISCOMFORT [None]
  - DRUG INEFFECTIVE [None]
  - NAUSEA [None]
